FAERS Safety Report 6506295-2 (Version None)
Quarter: 2009Q4

REPORT INFORMATION
  Report Type: 
  Country: None (occurrence: None)
  Receive Date: 20091218
  Receipt Date: 20091215
  Transmission Date: 20100525
  Serious: Yes (Other)
  Sender: FDA-Public Use
  Company Number: FR-BAYER-200937844GPV

PATIENT
  Age: 37 Year
  Sex: Female

DRUGS (2)
  1. IZILOX [Suspect]
     Indication: SINUSITIS
     Dosage: TOTAL DAILY DOSE: 400 MG  UNIT DOSE: 400 MG
     Route: 048
     Dates: start: 20091026, end: 20091028
  2. RHINOFLUIMUCIL [Concomitant]
     Indication: SINUSITIS
     Route: 045
     Dates: start: 20091026, end: 20091101

REACTIONS (4)
  - ASTHENIA [None]
  - TREMOR [None]
  - VERTIGO [None]
  - VOMITING [None]
